FAERS Safety Report 16710240 (Version 1)
Quarter: 2019Q3

REPORT INFORMATION
  Report Type: Spontaneous
  Country: US (occurrence: US)
  Receive Date: 20190816
  Receipt Date: 20190816
  Transmission Date: 20191004
  Serious: No
  Sender: FDA-Public Use
  Company Number: US-JNJFOC-20190816809

PATIENT
  Age: 83 Year
  Sex: Male
  Weight: 58.57 kg

DRUGS (1)
  1. DARZALEX [Suspect]
     Active Substance: DARATUMUMAB
     Indication: PLASMA CELL MYELOMA
     Dosage: 500 MG ON DAY 1 OF SPLIT DOSE
     Route: 042
     Dates: start: 20190812

REACTIONS (2)
  - Infusion site extravasation [Unknown]
  - Underdose [Unknown]

NARRATIVE: CASE EVENT DATE: 20190813
